FAERS Safety Report 7681054-6 (Version None)
Quarter: 2011Q3

REPORT INFORMATION
  Report Type: 
  Country: None (occurrence: None)
  Receive Date: 20110809
  Receipt Date: 20110727
  Transmission Date: 20111222
  Serious: Yes (Death, Life-Threatening, Hospitalization)
  Sender: FDA-Public Use
  Company Number: 2011MA010041

PATIENT
  Age: 58 Year
  Sex: Male
  Weight: 92.9874 kg

DRUGS (26)
  1. POTASSIUM CHLORIDE [Concomitant]
  2. XOPENEX [Concomitant]
  3. CAPOTEN [Concomitant]
  4. ZYLOPRIM [Concomitant]
  5. MORPHINE [Concomitant]
  6. SOLU-MEDROL [Concomitant]
  7. OXYGEN [Concomitant]
  8. LEVAQUIN [Concomitant]
  9. ATROVENT [Concomitant]
  10. LANOXIN [Concomitant]
  11. PROTONIX [Concomitant]
  12. HYDREA [Concomitant]
  13. ALBUTEROL SULFATE AUTOHALER [Concomitant]
  14. GUAIFENEX DM [Concomitant]
  15. INSPRA [Concomitant]
  16. DIGOXIN [Suspect]
     Dosage: 0.25 MG;QD
     Dates: end: 20071123
  17. AMIODARONE HCL [Concomitant]
  18. COREG [Concomitant]
  19. SPIRONOLACTONE [Concomitant]
  20. LASIX [Concomitant]
  21. LISINOPRIL [Concomitant]
  22. ASPIRIN [Concomitant]
  23. AMOXICILLIN [Concomitant]
  24. ALLOPURINOL [Concomitant]
  25. CORDARONE [Concomitant]
  26. WARFARIN SODIUM [Concomitant]

REACTIONS (56)
  - WEIGHT DECREASED [None]
  - DIZZINESS [None]
  - HYPOKALAEMIA [None]
  - AORTIC ARTERIOSCLEROSIS [None]
  - CAROTID BRUIT [None]
  - ATRIOVENTRICULAR BLOCK FIRST DEGREE [None]
  - CARDIAC FAILURE CONGESTIVE [None]
  - WEIGHT INCREASED [None]
  - INTRACARDIAC THROMBUS [None]
  - ANXIETY [None]
  - NASAL CONGESTION [None]
  - BRAIN NATRIURETIC PEPTIDE INCREASED [None]
  - TOXICITY TO VARIOUS AGENTS [None]
  - HYPOTENSION [None]
  - CHRONIC LYMPHOCYTIC LEUKAEMIA [None]
  - ACUTE RESPIRATORY FAILURE [None]
  - SINUS CONGESTION [None]
  - INGUINAL HERNIA [None]
  - HEMIANOPIA [None]
  - ATRIAL FIBRILLATION [None]
  - HYPERKALAEMIA [None]
  - CONGESTIVE CARDIOMYOPATHY [None]
  - PULMONARY OEDEMA [None]
  - MYOCARDIAL INFARCTION [None]
  - PULMONARY HYPERTENSION [None]
  - BUNDLE BRANCH BLOCK LEFT [None]
  - VISION BLURRED [None]
  - AMAUROSIS FUGAX [None]
  - CAROTID ARTERY STENOSIS [None]
  - CEREBROVASCULAR ACCIDENT [None]
  - CARDIOACTIVE DRUG LEVEL DECREASED [None]
  - CHEST DISCOMFORT [None]
  - B-CELL SMALL LYMPHOCYTIC LYMPHOMA [None]
  - VIRAL CARDIOMYOPATHY [None]
  - FIBRIN D DIMER INCREASED [None]
  - CHRONIC OBSTRUCTIVE PULMONARY DISEASE [None]
  - ATELECTASIS [None]
  - CEREBRAL INFARCTION [None]
  - REFUSAL OF TREATMENT BY PATIENT [None]
  - BRONCHITIS BACTERIAL [None]
  - DRUG INTERACTION [None]
  - BRADYCARDIA [None]
  - DYSPNOEA EXERTIONAL [None]
  - ALANINE AMINOTRANSFERASE INCREASED [None]
  - SUDDEN CARDIAC DEATH [None]
  - HYPOXIA [None]
  - BRONCHIAL HYPERREACTIVITY [None]
  - CONDUCTION DISORDER [None]
  - LUNG CONSOLIDATION [None]
  - ARTERIOSCLEROSIS [None]
  - TRANSIENT ISCHAEMIC ATTACK [None]
  - PALPITATIONS [None]
  - FATIGUE [None]
  - BLOOD GLUCOSE INCREASED [None]
  - ASPARTATE AMINOTRANSFERASE INCREASED [None]
  - CEREBRAL THROMBOSIS [None]
